FAERS Safety Report 11341617 (Version 1)
Quarter: 2015Q3

REPORT INFORMATION
  Report Type: Spontaneous
  Country: US (occurrence: None)
  Receive Date: 20150803
  Receipt Date: 20150803
  Transmission Date: 20151125
  Serious: Yes (Disabling, Other)
  Sender: FDA-Public Use
  Company Number: None

PATIENT
  Age: 59 Year
  Sex: Female
  Weight: 122.47 kg

DRUGS (18)
  1. FORADIL [Suspect]
     Active Substance: FORMOTEROL FUMARATE
     Indication: ASTHMA
     Route: 055
     Dates: start: 20150505, end: 20150802
  2. NOVOLOG [Concomitant]
     Active Substance: INSULIN ASPART
  3. BENAZEPRIL HCL [Concomitant]
     Active Substance: BENAZEPRIL HYDROCHLORIDE
  4. FLOVENT [Concomitant]
     Active Substance: FLUTICASONE PROPIONATE
  5. CREATOR [Concomitant]
  6. CALCIUM CITRATE [Concomitant]
     Active Substance: CALCIUM CITRATE
  7. METHADONE [Concomitant]
     Active Substance: METHADONE HYDROCHLORIDE
  8. VITAMIN D3 [Concomitant]
     Active Substance: CHOLECALCIFEROL
  9. LEVOTHYROXINE. [Concomitant]
     Active Substance: LEVOTHYROXINE
  10. ZETA AMLODIPINE BESYLATE [Concomitant]
  11. DULOXETINE. [Concomitant]
     Active Substance: DULOXETINE
  12. MULTIVITAMIN [Concomitant]
     Active Substance: VITAMINS
  13. ZAFIRLUKAST. [Concomitant]
     Active Substance: ZAFIRLUKAST
  14. FORADIL [Concomitant]
     Active Substance: FORMOTEROL FUMARATE
  15. LANTUS [Concomitant]
     Active Substance: INSULIN GLARGINE
  16. BYDUREON [Concomitant]
     Active Substance: EXENATIDE
  17. GABAPENTIN. [Concomitant]
     Active Substance: GABAPENTIN
  18. PROAIR HFA [Concomitant]
     Active Substance: ALBUTEROL SULFATE

REACTIONS (4)
  - Product quality issue [None]
  - Asthma [None]
  - Choking [None]
  - Foreign body [None]

NARRATIVE: CASE EVENT DATE: 20150801
